FAERS Safety Report 14655962 (Version 1)
Quarter: 2018Q1

REPORT INFORMATION
  Report Type: Report from Study
  Country: JP (occurrence: JP)
  Receive Date: 20180319
  Receipt Date: 20180319
  Transmission Date: 20180509
  Serious: Yes (Hospitalization, Other)
  Sender: FDA-Public Use
  Company Number: JP-SA-2018SA036107

PATIENT
  Age: 64 Year
  Sex: Female
  Weight: 77 kg

DRUGS (25)
  1. MOHRUS [Suspect]
     Active Substance: KETOPROFEN
     Indication: PERIARTHRITIS
     Dosage: 2 SHEETS, TAPE
     Route: 061
     Dates: start: 20151125
  2. CALONAL [Suspect]
     Active Substance: ACETAMINOPHEN
     Indication: NASOPHARYNGITIS
     Route: 048
     Dates: start: 20180109
  3. INSULIN GLARGINE [Concomitant]
     Active Substance: INSULIN GLARGINE
     Indication: TYPE 2 DIABETES MELLITUS
     Dosage: T14?GRADUATIONS/DAY.
     Route: 065
     Dates: start: 20170920, end: 20171012
  4. INSULIN GLARGINE [Concomitant]
     Active Substance: INSULIN GLARGINE
     Indication: TYPE 2 DIABETES MELLITUS
     Dosage: 16 GRADUATIONS,
     Route: 065
     Dates: start: 20171013, end: 20171117
  5. MYSLEE [Suspect]
     Active Substance: ZOLPIDEM TARTRATE
     Indication: INSOMNIA
     Route: 048
     Dates: start: 20150616
  6. LANSOPRAZOLE. [Suspect]
     Active Substance: LANSOPRAZOLE
     Indication: CHRONIC GASTRITIS
     Route: 048
     Dates: start: 20160705
  7. DEPAS [Suspect]
     Active Substance: ETIZOLAM
     Indication: PANIC DISORDER
     Route: 048
     Dates: start: 20150714
  8. HYALEIN [Suspect]
     Active Substance: HYALURONATE SODIUM
     Indication: DRY EYE
     Route: 047
     Dates: start: 20161124
  9. NITROPEN [Suspect]
     Active Substance: NITROGLYCERIN
     Indication: CHEST PAIN
     Route: 048
     Dates: start: 20141121
  10. INSULIN GLARGINE [Concomitant]
     Active Substance: INSULIN GLARGINE
     Indication: TYPE 2 DIABETES MELLITUS
     Dosage: 17 GRADUATIONS/DAY
     Route: 065
     Dates: start: 20171125, end: 20171204
  11. INSULIN GLARGINE [Concomitant]
     Active Substance: INSULIN GLARGINE
     Indication: TYPE 2 DIABETES MELLITUS
     Dosage: 19 GRADUATIONS/DAY
     Route: 065
     Dates: start: 20171205, end: 20171211
  12. INSULIN GLARGINE [Concomitant]
     Active Substance: INSULIN GLARGINE
     Indication: TYPE 2 DIABETES MELLITUS
     Dosage: 20 GRADUATIONS/DAY
     Route: 065
     Dates: start: 20171212
  13. JZOLOFT [Suspect]
     Active Substance: SERTRALINE HYDROCHLORIDE
     Indication: PANIC DISORDER
     Route: 048
     Dates: start: 20140805
  14. DESYREL [Suspect]
     Active Substance: TRAZODONE HYDROCHLORIDE
     Indication: PANIC DISORDER
     Route: 048
     Dates: start: 2013
  15. LIVOSTIN [Suspect]
     Active Substance: LEVOCABASTINE HYDROCHLORIDE
     Indication: CONJUNCTIVITIS ALLERGIC
     Route: 047
     Dates: start: 20170523
  16. INSULIN GLARGINE [Concomitant]
     Active Substance: INSULIN GLARGINE
     Indication: TYPE 2 DIABETES MELLITUS
     Dosage: 12?GRADUATIONS/DAY.
     Route: 065
     Dates: start: 20170829, end: 20170919
  17. ALLEGRA [Suspect]
     Active Substance: FEXOFENADINE HYDROCHLORIDE
     Indication: NASOPHARYNGITIS
     Route: 048
     Dates: start: 20180109
  18. WYPAX [Suspect]
     Active Substance: LORAZEPAM
     Indication: PANIC DISORDER
     Route: 048
     Dates: start: 20150616
  19. INSULIN [Concomitant]
     Active Substance: INSULIN NOS
     Route: 065
     Dates: start: 20161213
  20. METGLUCO [Suspect]
     Active Substance: METFORMIN HYDROCHLORIDE
     Indication: TYPE 2 DIABETES MELLITUS
     Route: 065
     Dates: start: 20170821
  21. INSULIN GLARGINE [Concomitant]
     Active Substance: INSULIN GLARGINE
     Indication: TYPE 2 DIABETES MELLITUS
     Dosage: 16 GRADUATIONS,
     Route: 065
     Dates: start: 20171118, end: 20171124
  22. LEXOTAN [Suspect]
     Active Substance: BROMAZEPAM
     Indication: PANIC DISORDER
     Route: 048
     Dates: start: 20160510
  23. GATIFLO [Suspect]
     Active Substance: GATIFLOXACIN
     Indication: DRY EYE
     Route: 047
     Dates: start: 20170424
  24. TAGAMET [Suspect]
     Active Substance: CIMETIDINE
     Indication: CHEST PAIN
     Route: 048
     Dates: start: 20170920
  25. INSULIN GLARGINE [Concomitant]
     Active Substance: INSULIN GLARGINE
     Indication: TYPE 2 DIABETES MELLITUS
     Dosage: 10 GRADUATIONS, BEFORE BREAKFAST
     Route: 065
     Dates: start: 20170821, end: 20170828

REACTIONS (5)
  - Pneumonia aspiration [Recovered/Resolved with Sequelae]
  - Hypoglycaemic encephalopathy [Not Recovered/Not Resolved]
  - Intentional overdose [Unknown]
  - Hypoglycaemia [Not Recovered/Not Resolved]
  - Suicide attempt [Not Recovered/Not Resolved]

NARRATIVE: CASE EVENT DATE: 20180131
